FAERS Safety Report 9253766 (Version 1)
Quarter: 2013Q2

REPORT INFORMATION
  Report Type: Spontaneous
  Country: US (occurrence: US)
  Receive Date: 20130425
  Receipt Date: 20130425
  Transmission Date: 20140414
  Serious: No
  Sender: FDA-Public Use
  Company Number: US-PFIZER INC-2013125889

PATIENT
  Sex: Female

DRUGS (2)
  1. LYRICA [Suspect]
     Indication: HYPOAESTHESIA
     Dosage: 50 MG, 2X/DAY
  2. LYRICA [Suspect]
     Indication: PARAESTHESIA

REACTIONS (3)
  - Dizziness [Unknown]
  - Insomnia [Unknown]
  - Intentional drug misuse [Unknown]
